FAERS Safety Report 8621628-9 (Version None)
Quarter: 2012Q3

REPORT INFORMATION
  Report Type: 
  Country: None (occurrence: None)
  Receive Date: 20120820
  Receipt Date: 20120820
  Transmission Date: 20120928
  Serious: Yes (Other)
  Sender: FDA-Public Use
  Company Number: None

PATIENT
  Age: 35 Year
  Sex: Female

DRUGS (2)
  1. RISPERIDONE [Suspect]
  2. BENZTROPINE MESYLATE [Suspect]

REACTIONS (2)
  - GALACTORRHOEA [None]
  - AMENORRHOEA [None]
